FAERS Safety Report 8423858-8 (Version None)
Quarter: 2012Q2

REPORT INFORMATION
  Report Type: 
  Country: None (occurrence: None)
  Receive Date: 20120608
  Receipt Date: 20110505
  Transmission Date: 20120825
  Serious: No
  Sender: FDA-Public Use
  Company Number: US-ASTRAZENECA-2009UW07533

PATIENT
  Age: 89 Year
  Sex: Female
  Weight: 65.8 kg

DRUGS (13)
  1. ATACAND [Suspect]
     Indication: HYPERTENSION
     Route: 048
  2. ATACAND [Suspect]
     Route: 048
  3. FERROUS SULFATE TAB [Concomitant]
  4. IRON [Concomitant]
  5. ATACAND [Suspect]
     Route: 048
  6. NASACORT [Concomitant]
     Indication: NASAL POLYPS
  7. ASCORBIC ACID [Concomitant]
  8. ATACAND [Suspect]
     Dosage: TAKING HALF OF A 4 MG TABLET AND A QUARTER
     Route: 048
  9. FLOVENT/SLO VENT [Concomitant]
     Indication: ASTHMA
  10. ATACAND [Suspect]
     Route: 048
  11. CARVEDILOL [Concomitant]
     Indication: HYPERTENSION
  12. THYROID TAB [Concomitant]
     Indication: HYPOTHYROIDISM
  13. PORCINE WESTHROID [Concomitant]

REACTIONS (13)
  - DISSOCIATION [None]
  - BLOOD PRESSURE INCREASED [None]
  - GAIT DISTURBANCE [None]
  - MUSCULOSKELETAL STIFFNESS [None]
  - WRONG TECHNIQUE IN DRUG USAGE PROCESS [None]
  - FEELING JITTERY [None]
  - PSYCHOMOTOR HYPERACTIVITY [None]
  - BLOOD UREA INCREASED [None]
  - DIARRHOEA [None]
  - HYPOAESTHESIA [None]
  - DEHYDRATION [None]
  - FEELING ABNORMAL [None]
  - HYPERTHYROIDISM [None]
